FAERS Safety Report 4650691-5 (Version None)
Quarter: 2005Q2

REPORT INFORMATION
  Report Type: 
  Country: None (occurrence: None)
  Receive Date: 20050503
  Receipt Date: 20040618
  Transmission Date: 20051028
  Serious: Yes (Death, Hospitalization)
  Sender: FDA-Public Use
  Company Number: ES-ABBOTT-04P-144-0264461-00

PATIENT
  Sex: Female
  Weight: 70 kg

DRUGS (20)
  1. HUMIRA [Suspect]
     Indication: RHEUMATOID ARTHRITIS
     Route: 058
  2. FAWEYE [Concomitant]
     Indication: RHEUMATOID ARTHRITIS
     Route: 048
     Dates: start: 20020801, end: 20030201
  3. ACENOCOUMAROL [Concomitant]
     Indication: ANTICOAGULANT THERAPY
     Route: 048
     Dates: start: 20000101
  4. OMEPRAZOLE [Concomitant]
     Indication: PROPHYLAXIS AGAINST GASTROINTESTINAL ULCER
     Route: 048
     Dates: start: 20000101, end: 20030303
  5. TETRAZEPAM [Concomitant]
     Indication: HYPOTONIA
     Route: 048
     Dates: start: 19901220
  6. METHOTREXATE [Concomitant]
     Indication: RHEUMATOID ARTHRITIS
     Route: 048
     Dates: start: 19981225, end: 19990419
  7. METHOTREXATE [Concomitant]
     Route: 048
     Dates: start: 19970214, end: 19971107
  8. METHOTREXATE [Concomitant]
     Route: 048
     Dates: start: 19971108, end: 19980626
  9. METHOTREXATE [Concomitant]
     Route: 048
     Dates: start: 19970627, end: 19981224
  10. PANTOPRAZOLE SODIUM [Concomitant]
     Indication: PROPHYLAXIS AGAINST GASTROINTESTINAL ULCER
     Route: 048
     Dates: start: 20030304
  11. HYDROCHLOROTHIAZIDE [Concomitant]
     Indication: HYPERTENSION
     Route: 048
     Dates: start: 20030303
  12. HYDROCHLOROTHIAZIDE [Concomitant]
     Route: 048
     Dates: start: 20031202
  13. DOMPERIDONE [Concomitant]
     Indication: PAIN
     Route: 048
     Dates: start: 20030303, end: 20030930
  14. AURANOFIN [Concomitant]
     Indication: RHEUMATOID ARTHRITIS
     Route: 048
     Dates: start: 19881230, end: 19890117
  15. CLARITHROMYCIN [Concomitant]
     Indication: BRONCHITIS
     Dates: start: 20030216, end: 20030301
  16. CLOPERASTINE [Concomitant]
     Indication: BRONCHITIS
     Route: 048
     Dates: start: 20030216, end: 20030301
  17. FOLIC ACID [Concomitant]
     Indication: VITAMIN SUPPLEMENTATION
     Route: 048
     Dates: start: 20030304
  18. CYANOCOBALAMIN-TANNIN COMPLEX [Concomitant]
     Indication: DRUG USE FOR UNKNOWN INDICATION
     Route: 030
     Dates: start: 20030304, end: 20030310
  19. CYANOCOBALAMIN-TANNIN COMPLEX [Concomitant]
     Route: 030
     Dates: start: 20030311, end: 20030325
  20. CYANOCOBALAMIN-TANNIN COMPLEX [Concomitant]
     Route: 030
     Dates: start: 20030326

REACTIONS (7)
  - ANAEMIA [None]
  - CARDIO-RESPIRATORY ARREST [None]
  - CONSTIPATION [None]
  - FALL [None]
  - FEMUR FRACTURE [None]
  - FRACTURE [None]
  - HYPOTENSION [None]
